FAERS Safety Report 6383778-X (Version None)
Quarter: 2009Q4

REPORT INFORMATION
  Report Type: 
  Country: None (occurrence: None)
  Receive Date: 20091001
  Receipt Date: 20090925
  Transmission Date: 20100525
  Serious: Yes (Other)
  Sender: FDA-Public Use
  Company Number: US-JNJFOC-20090903492

PATIENT
  Sex: Female

DRUGS (7)
  1. TOPAMAX [Suspect]
     Indication: MIGRAINE PROPHYLAXIS
     Route: 048
  2. SYNTHROID [Concomitant]
     Route: 065
  3. NEXIUM [Concomitant]
     Route: 065
  4. HUMIRA [Concomitant]
     Route: 065
  5. MAXALT [Concomitant]
     Route: 065
  6. FERREX [Concomitant]
     Route: 065
  7. MULTI-VITAMINS [Concomitant]
     Route: 065

REACTIONS (2)
  - ATAXIA [None]
  - PERONEAL NERVE PALSY [None]
